FAERS Safety Report 21084083 (Version 2)
Quarter: 2023Q2

REPORT INFORMATION
  Report Type: Report from Study
  Country: US (occurrence: US)
  Receive Date: 20220714
  Receipt Date: 20230630
  Transmission Date: 20230721
  Serious: Yes (Other)
  Sender: FDA-Public Use
  Company Number: US-JAZZ-2022-US-020320

PATIENT
  Age: 7 Year
  Sex: Male

DRUGS (2)
  1. EPIDIOLEX [Suspect]
     Active Substance: CANNABIDIOL
     Indication: Product used for unknown indication
     Dosage: 1 MILLILITER, BID
     Dates: end: 20220612
  2. EPIDIOLEX [Suspect]
     Active Substance: CANNABIDIOL
     Dosage: 1.5 MILLILITER, BID
     Route: 048

REACTIONS (4)
  - Product dose omission issue [Unknown]
  - Incorrect dose administered [Unknown]
  - Product administration error [Unknown]
  - Product administration interrupted [Unknown]

NARRATIVE: CASE EVENT DATE: 20220612
